FAERS Safety Report 8790402 (Version 1)
Quarter: 2012Q4

REPORT INFORMATION
  Report Type: 
  Country: FR (occurrence: FR)
  Receive Date: 20120917
  Receipt Date: 20120917
  Transmission Date: 20130627
  Serious: Yes (Other)
  Sender: FDA-Public Use
  Company Number: FR-JNJFOC-20120812722

PATIENT
  Age: 60 Year
  Sex: Male
  Weight: 85 kg

DRUGS (5)
  1. REMICADE [Suspect]
     Indication: PSORIATIC ARTHROPATHY
     Dosage: 8th infusion
     Route: 042
     Dates: start: 20120820, end: 20120820
  2. REMICADE [Suspect]
     Indication: PSORIATIC ARTHROPATHY
     Dosage: 7th infusion
     Route: 042
     Dates: start: 2012
  3. REMICADE [Suspect]
     Indication: PSORIATIC ARTHROPATHY
     Dosage: 6th infusion
     Route: 042
     Dates: start: 2012
  4. REMICADE [Suspect]
     Indication: PSORIATIC ARTHROPATHY
     Dosage: 5th infusion
     Route: 042
     Dates: start: 2012
  5. BI-PROFENID [Concomitant]
     Route: 065

REACTIONS (7)
  - Parotid gland enlargement [Unknown]
  - Infusion related reaction [Unknown]
  - Rash [Unknown]
  - Conjunctivitis [Unknown]
  - Folliculitis [Unknown]
  - Libido decreased [Unknown]
  - Sinusitis [Unknown]
